FAERS Safety Report 18668013 (Version 2)
Quarter: 2021Q1

REPORT INFORMATION
  Report Type: Spontaneous
  Country: DE (occurrence: DE)
  Receive Date: 20201228
  Receipt Date: 20210128
  Transmission Date: 20210419
  Serious: Yes (Other)
  Sender: FDA-Public Use
  Company Number: NVSC2020DE341573

PATIENT
  Sex: Female

DRUGS (3)
  1. PANTOPRAZOLE [Concomitant]
     Active Substance: PANTOPRAZOLE
     Indication: PRODUCT USED FOR UNKNOWN INDICATION
     Dosage: UNK (REGULARLY)
     Route: 065
  2. VALSARTAN ? 1 A PHARMA PLUS [Suspect]
     Active Substance: HYDROCHLOROTHIAZIDE\VALSARTAN
     Indication: HYPERTENSION
     Dosage: 1 DF
     Route: 065
     Dates: start: 201401, end: 201807
  3. ASPIRIN. [Concomitant]
     Active Substance: ASPIRIN
     Indication: PRODUCT USED FOR UNKNOWN INDICATION
     Dosage: UNK (REGULARLY) (CONCENTRATION: 100 OT)
     Route: 065

REACTIONS (4)
  - Hypertensive crisis [Not Recovered/Not Resolved]
  - Emotional distress [Unknown]
  - Toxicity to various agents [Unknown]
  - Product contamination [Unknown]

NARRATIVE: CASE EVENT DATE: 20201201
